FAERS Safety Report 7555816-X (Version None)
Quarter: 2011Q2

REPORT INFORMATION
  Report Type: 
  Country: None (occurrence: None)
  Receive Date: 20110618
  Receipt Date: 20110608
  Transmission Date: 20111010
  Serious: Yes (Hospitalization, Other)
  Sender: FDA-Public Use
  Company Number: US-BAYER-201024402NA

PATIENT
  Age: 27 Year
  Sex: Female
  Weight: 53.515 kg

DRUGS (5)
  1. YAZ [Suspect]
     Indication: CONTRACEPTION
     Dosage: UNK
     Route: 048
     Dates: start: 20080401, end: 20080601
  2. ADVAIR DISKUS 100/50 [Concomitant]
     Indication: ASTHMA
     Dosage: UNK UNK, BID
     Route: 045
  3. YAZ [Suspect]
     Indication: ACNE
  4. TETRACYCLINE [Concomitant]
     Route: 048
  5. TRETINOIN [Concomitant]
     Indication: ACNE
     Dosage: 0.025 %, UNK
     Route: 061

REACTIONS (1)
  - DEEP VEIN THROMBOSIS [None]
